FAERS Safety Report 17924114 (Version 1)
Quarter: 2020Q2

REPORT INFORMATION
  Report Type: Spontaneous
  Country: FR (occurrence: FR)
  Receive Date: 20200622
  Receipt Date: 20200622
  Transmission Date: 20200714
  Serious: Yes (Hospitalization, Other)
  Sender: FDA-Public Use
  Company Number: FR-PFIZER INC-2020238738

PATIENT
  Age: 44 Year
  Sex: Male
  Weight: 75 kg

DRUGS (9)
  1. MYFORTIC [Suspect]
     Active Substance: MYCOPHENOLATE SODIUM
     Indication: PROPHYLAXIS AGAINST TRANSPLANT REJECTION
     Dosage: 1440 MG, 1X/DAY
     Route: 048
     Dates: start: 20190912, end: 20191029
  2. NEORAL [Suspect]
     Active Substance: CYCLOSPORINE
     Indication: PROPHYLAXIS AGAINST TRANSPLANT REJECTION
     Dosage: 250 MG, 1X/DAY
     Route: 048
     Dates: start: 20190927
  3. SANDIMMUN [Concomitant]
     Active Substance: CYCLOSPORINE
     Dosage: UNK
     Route: 041
     Dates: start: 20190909, end: 20190926
  4. VALACICLOVIR [Suspect]
     Active Substance: VALACYCLOVIR HYDROCHLORIDE
     Indication: PROPHYLAXIS
     Dosage: 1000 MG, 1X/DAY
     Route: 048
     Dates: start: 20190912, end: 20191026
  5. DUPHALAC [Suspect]
     Active Substance: LACTULOSE
     Indication: CONSTIPATION
     Dosage: 4 DF, 1X/DAY
     Route: 048
     Dates: start: 20190917, end: 20191026
  6. SERESTA [Concomitant]
     Active Substance: OXAZEPAM
     Dosage: 25 MG, 1X/DAY
     Route: 048
  7. CHOLURSO [Concomitant]
     Active Substance: URSODIOL
     Dosage: 3 DF, 1X/DAY
     Route: 048
     Dates: start: 20190912
  8. ALPRAZOLAM. [Concomitant]
     Active Substance: ALPRAZOLAM
     Dosage: 0.5 MG, 1X/DAY
     Route: 048
  9. FLUCONAZOLE. [Suspect]
     Active Substance: FLUCONAZOLE
     Indication: PROPHYLAXIS
     Dosage: 400 MG, 1X/DAY
     Route: 048
     Dates: start: 20190912

REACTIONS (1)
  - Acute kidney injury [Recovered/Resolved]

NARRATIVE: CASE EVENT DATE: 20191012
